FAERS Safety Report 17475440 (Version 2)
Quarter: 2020Q3

REPORT INFORMATION
  Report Type: Spontaneous
  Country: US (occurrence: US)
  Receive Date: 20200228
  Receipt Date: 20200831
  Transmission Date: 20201102
  Serious: No
  Sender: FDA-Public Use
  Company Number: US-PFIZER INC-2020088064

PATIENT
  Age: 35 Year
  Sex: Female

DRUGS (2)
  1. XELJANZ XR [Suspect]
     Active Substance: TOFACITINIB CITRATE
     Dosage: 11 MG, DAILY
     Route: 048
     Dates: start: 201912, end: 20200625
  2. XELJANZ XR [Suspect]
     Active Substance: TOFACITINIB CITRATE
     Indication: RHEUMATOID ARTHRITIS
     Dosage: 11 MG, DAILY
     Route: 058
     Dates: start: 201912, end: 20200625

REACTIONS (10)
  - Product use issue [Unknown]
  - Cough [Unknown]
  - Nerve compression [Unknown]
  - Pyrexia [Unknown]
  - SARS-CoV-2 test positive [Unknown]
  - Sinus disorder [Unknown]
  - Off label use [Unknown]
  - Nasopharyngitis [Unknown]
  - Asthma [Unknown]
  - Fatigue [Unknown]

NARRATIVE: CASE EVENT DATE: 201912
